FAERS Safety Report 16454284 (Version 2)
Quarter: 2019Q3

REPORT INFORMATION
  Report Type: Spontaneous
  Country: DE (occurrence: DE)
  Receive Date: 20190619
  Receipt Date: 20190909
  Transmission Date: 20191004
  Serious: Yes (Other)
  Sender: FDA-Public Use
  Company Number: PHHY2019DE137631

PATIENT

DRUGS (3)
  1. L-THYROXINE [Concomitant]
     Active Substance: LEVOTHYROXINE
     Indication: FOETAL EXPOSURE DURING PREGNANCY
     Dosage: MATERNAL DOSE: 10000 UG QD ((0.- 21.4 GESTATIONAL WEEK))
     Route: 064
  2. LAMOTRIGINE. [Suspect]
     Active Substance: LAMOTRIGINE
     Indication: FOETAL EXPOSURE DURING PREGNANCY
     Dosage: MATERNAL DOSE: 300 MG, QD (BIS 100) (0.- 21.4 GESTATIONAL WEEK)
     Route: 064
  3. FOLSAEURE [Concomitant]
     Active Substance: FOLIC ACID
     Indication: FOETAL EXPOSURE DURING PREGNANCY
     Dosage: MATERNAL DOSE: 5 MG, QD (0. - 6.5. GESTATIONAL WEEK)
     Route: 064

REACTIONS (3)
  - Foetal growth restriction [Recovered/Resolved]
  - Exposure during pregnancy [Unknown]
  - Congenital uterine anomaly [Unknown]
